FAERS Safety Report 6879087-2 (Version None)
Quarter: 2010Q3

REPORT INFORMATION
  Report Type: 
  Country: None (occurrence: None)
  Receive Date: 20100728
  Receipt Date: 20100713
  Transmission Date: 20110219
  Serious: No
  Sender: FDA-Public Use
  Company Number: PHHY2010US44281

PATIENT
  Sex: Female

DRUGS (3)
  1. FEMARA [Suspect]
     Dosage: UNK
  2. LEVOTHYROXINE [Concomitant]
  3. TOPROL-XL [Concomitant]

REACTIONS (2)
  - ASTHENIA [None]
  - BONE PAIN [None]
